FAERS Safety Report 8809952 (Version 2)
Quarter: 2013Q4

REPORT INFORMATION
  Report Type: Spontaneous
  Country: US (occurrence: US)
  Receive Date: 20120926
  Receipt Date: 20131105
  Transmission Date: 20140711
  Serious: Yes (Disabling)
  Sender: FDA-Public Use
  Company Number: US-009507513-1209USA009628

PATIENT
  Age: 51 Year
  Sex: Female

DRUGS (1)
  1. PRINIVIL [Suspect]
     Dosage: 5 MG, UNK
     Route: 048

REACTIONS (1)
  - Blood pressure abnormal [Unknown]
